FAERS Safety Report 17683811 (Version 3)
Quarter: 2020Q2

REPORT INFORMATION
  Report Type: Report from Study
  Country: MX (occurrence: MX)
  Receive Date: 20200420
  Receipt Date: 20200504
  Transmission Date: 20200714
  Serious: Yes (Other)
  Sender: FDA-Public Use
  Company Number: NVSC2020MX104710

PATIENT
  Age: 100 Year
  Sex: Female
  Weight: 56 kg

DRUGS (2)
  1. OMEPRAZOLE. [Concomitant]
     Active Substance: OMEPRAZOLE
     Indication: ABDOMINAL DISCOMFORT
     Dosage: 1 DF, BID (IN THE MORNING AND AT NIGHT)
     Route: 048
  2. CO-DIOVAN [Suspect]
     Active Substance: HYDROCHLOROTHIAZIDE\VALSARTAN
     Indication: BLOOD PRESSURE INCREASED
     Dosage: 1 DF (160/12.5 MG), QD
     Route: 048

REACTIONS (5)
  - Infarction [Recovered/Resolved]
  - Feeling abnormal [Recovered/Resolved]
  - Dementia Alzheimer^s type [Unknown]
  - Senile dementia [Not Recovered/Not Resolved]
  - Delirium [Recovering/Resolving]

NARRATIVE: CASE EVENT DATE: 2018
